FAERS Safety Report 14303886 (Version 1)
Quarter: 2017Q4

REPORT INFORMATION
  Report Type: Spontaneous
  Country: JP (occurrence: JP)
  Receive Date: 20171219
  Receipt Date: 20171219
  Transmission Date: 20180321
  Serious: Yes (Hospitalization, Other)
  Sender: FDA-Public Use
  Company Number: JP-OTSUKA-JP-2011-11445

PATIENT
  Age: 56 Year
  Sex: Male
  Weight: 54 kg

DRUGS (11)
  1. ZOLPIDEM [Concomitant]
     Active Substance: ZOLPIDEM\ZOLPIDEM TARTRATE
     Dosage: TABS
     Dates: start: 20110816, end: 20110901
  2. ABILIFY [Suspect]
     Active Substance: ARIPIPRAZOLE
     Indication: SCHIZOPHRENIA
     Dosage: 6 MG, QD
     Route: 048
     Dates: start: 20110824, end: 20110824
  3. ARTANE [Concomitant]
     Active Substance: TRIHEXYPHENIDYL HYDROCHLORIDE
     Indication: SCHIZOPHRENIA
     Dosage: 2 MG, BID
     Route: 048
     Dates: start: 20110814, end: 20110901
  4. ABILIFY [Suspect]
     Active Substance: ARIPIPRAZOLE
     Indication: SCHIZOPHRENIA
     Dosage: 30 MG, QD
     Route: 048
     Dates: start: 20110825, end: 20110901
  5. LONASEN [Concomitant]
     Active Substance: BLONANSERIN
     Dosage: 8 MG, BID
     Route: 048
     Dates: start: 20110814, end: 20110831
  6. SILECE [Concomitant]
     Active Substance: FLUNITRAZEPAM
     Indication: INSOMNIA
     Dosage: 4 MG, QD
     Route: 048
     Dates: start: 20110814, end: 20110901
  7. MYSLEE [Concomitant]
     Active Substance: ZOLPIDEM TARTRATE
     Indication: INSOMNIA
     Dosage: 5 MG, QD
     Route: 048
     Dates: start: 20110816, end: 20110901
  8. FLUNITRAZEPAM [Concomitant]
     Active Substance: FLUNITRAZEPAM
     Dosage: TABS
     Dates: start: 20110814, end: 20110901
  9. LONASEN [Concomitant]
     Active Substance: BLONANSERIN
     Indication: SCHIZOPHRENIA
     Dosage: UNK
     Route: 048
  10. LORAZEPAM. [Concomitant]
     Active Substance: LORAZEPAM
     Dosage: TABS
     Dates: start: 20110816, end: 20110901
  11. WYPAX [Concomitant]
     Active Substance: LORAZEPAM
     Indication: SCHIZOPHRENIA
     Dosage: 0.5 MG, BID
     Route: 048
     Dates: start: 20110816, end: 20110901

REACTIONS (2)
  - Gastric ulcer [Recovering/Resolving]
  - Ileus paralytic [Recovered/Resolved]

NARRATIVE: CASE EVENT DATE: 20110901
